FAERS Safety Report 8758618 (Version 1)
Quarter: 2012Q4

REPORT INFORMATION
  Report Type: 
  Country: FR (occurrence: FR)
  Receive Date: 20120829
  Receipt Date: 20120829
  Transmission Date: 20130627
  Serious: Yes (Death, Life-Threatening, Hospitalization)
  Sender: FDA-Public Use
  Company Number: FR-CELGENEUS-056-21880-12082353

PATIENT
  Sex: Male

DRUGS (3)
  1. REVLIMID [Suspect]
     Indication: SPLENOMEGALY
     Route: 048
     Dates: start: 20100212, end: 201006
  2. RUXOLITINIB [Suspect]
     Indication: DRUG USE FOR UNKNOWN INDICATION
     Dosage: 30 Milligram
     Route: 048
     Dates: start: 20110125, end: 20110509
  3. RUXOLITINIB [Suspect]
     Dosage: 20 Milligram
     Route: 048
     Dates: start: 20110510, end: 20110726

REACTIONS (2)
  - Colon cancer metastatic [Fatal]
  - Muscle spasms [Unknown]
